FAERS Safety Report 5733275-7 (Version None)
Quarter: 2008Q2

REPORT INFORMATION
  Report Type: 
  Country: None (occurrence: None)
  Receive Date: 20080509
  Receipt Date: 20080506
  Transmission Date: 20081010
  Serious: Yes (Hospitalization)
  Sender: FDA-Public Use
  Company Number: B0515075A

PATIENT
  Age: 3 Year
  Sex: Female

DRUGS (4)
  1. AUGMENTIN '125' [Suspect]
     Dosage: 750MG PER DAY
     Route: 048
     Dates: start: 20080225, end: 20080302
  2. TEGRETOL [Suspect]
     Indication: EPILEPSY
     Dosage: 150MG PER DAY
     Route: 048
     Dates: start: 20080228, end: 20080302
  3. UNASYN [Suspect]
     Dosage: 700MG PER DAY
     Route: 042
     Dates: start: 20080302, end: 20080302
  4. DEPAKOTE [Concomitant]
     Indication: ENCEPHALOPATHY
     Dosage: 300MG PER DAY
     Route: 048
     Dates: start: 20040912, end: 20080302

REACTIONS (7)
  - APHTHOUS STOMATITIS [None]
  - BLISTER [None]
  - CHEILITIS [None]
  - ESCHAR [None]
  - RASH PRURITIC [None]
  - SKIN LESION [None]
  - STEVENS-JOHNSON SYNDROME [None]
